FAERS Safety Report 17788233 (Version 1)
Quarter: 2020Q2

REPORT INFORMATION
  Report Type: Report from Study
  Country: CL (occurrence: CL)
  Receive Date: 20200514
  Receipt Date: 20200514
  Transmission Date: 20200714
  Serious: Yes (Hospitalization)
  Sender: FDA-Public Use
  Company Number: CL-JNJFOC-20190617854

PATIENT
  Age: 84 Year
  Sex: Male

DRUGS (13)
  1. ABIRATERONE ACETATE. [Suspect]
     Active Substance: ABIRATERONE ACETATE
     Indication: PROSTATE CANCER METASTATIC
     Route: 048
     Dates: start: 20190226, end: 20190521
  2. OLAPARIB. [Suspect]
     Active Substance: OLAPARIB
     Route: 048
     Dates: start: 20190522
  3. AMLODIPINE [Concomitant]
     Active Substance: AMLODIPINE BESYLATE
     Indication: HYPERTENSION
     Route: 048
     Dates: start: 200912
  4. PREDNISOLONE. [Suspect]
     Active Substance: PREDNISOLONE
     Indication: PROSTATE CANCER METASTATIC
     Route: 048
     Dates: start: 20190226, end: 20190521
  5. PREDNISOLONE. [Suspect]
     Active Substance: PREDNISOLONE
     Route: 048
     Dates: start: 20190522
  6. FOLIC ACID. [Concomitant]
     Active Substance: FOLIC ACID
     Indication: ANAEMIA
     Route: 048
     Dates: start: 20190528
  7. FASARAX/HYDROXYCHLOR HYDRATE [Concomitant]
     Indication: PRURITUS
     Route: 048
     Dates: start: 20190528, end: 20190528
  8. FASARAX/HYDROXYCHLOR HYDRATE [Concomitant]
     Route: 048
     Dates: start: 20190529
  9. ABIRATERONE ACETATE. [Suspect]
     Active Substance: ABIRATERONE ACETATE
     Route: 048
     Dates: start: 20190522
  10. OLAPARIB. [Suspect]
     Active Substance: OLAPARIB
     Indication: PROSTATE CANCER METASTATIC
     Route: 048
     Dates: start: 20190226, end: 20190521
  11. TELMISARTAN. [Concomitant]
     Active Substance: TELMISARTAN
     Indication: HYPERTENSION
     Route: 048
     Dates: start: 200912
  12. FERROUS FUMARATE, FOLIC ACID [Concomitant]
     Indication: ANAEMIA
     Route: 048
     Dates: start: 20190326, end: 20190507
  13. FERROUS FUMARATE, FOLIC ACID [Concomitant]
     Route: 048
     Dates: start: 20190507

REACTIONS (1)
  - Cerebral ischaemia [Not Recovered/Not Resolved]

NARRATIVE: CASE EVENT DATE: 20190602
